FAERS Safety Report 8586348-8 (Version None)
Quarter: 2012Q3

REPORT INFORMATION
  Report Type: 
  Country: None (occurrence: None)
  Receive Date: 20120810
  Receipt Date: 20120806
  Transmission Date: 20120928
  Serious: Yes (Death)
  Sender: FDA-Public Use
  Company Number: DE-ROCHE-1099031

PATIENT
  Sex: Female
  Weight: 81 kg

DRUGS (2)
  1. ROFERON-A [Suspect]
     Indication: RENAL CANCER
     Dosage: 3 MIO IU
     Route: 058
     Dates: start: 20120511, end: 20120607
  2. AVASTIN [Suspect]
     Indication: RENAL CANCER
     Route: 042
     Dates: start: 20120510, end: 20120607

REACTIONS (1)
  - NEOPLASM MALIGNANT [None]
